FAERS Safety Report 13503825 (Version 1)
Quarter: 2017Q2

REPORT INFORMATION
  Report Type: Spontaneous
  Country: US (occurrence: US)
  Receive Date: 20170502
  Receipt Date: 20170502
  Transmission Date: 20170830
  Serious: No
  Sender: FDA-Public Use
  Company Number: US-009507513-1704USA012618

PATIENT
  Age: 26 Year
  Sex: Female
  Weight: 65.76 kg

DRUGS (2)
  1. NEXPLANON [Suspect]
     Active Substance: ETONOGESTREL
     Indication: CONTRACEPTION
     Dosage: 1 DF,  3  YEARS
     Route: 059
     Dates: start: 20161222
  2. NEXPLANON [Suspect]
     Active Substance: ETONOGESTREL
     Indication: OVARIAN CYST

REACTIONS (7)
  - Hypoaesthesia [Unknown]
  - Product use issue [Unknown]
  - Migraine [Unknown]
  - Nausea [Unknown]
  - Abdominal pain [Unknown]
  - Implant site pain [Unknown]
  - Menorrhagia [Unknown]

NARRATIVE: CASE EVENT DATE: 20161222
